FAERS Safety Report 5247304-0 (Version None)
Quarter: 2007Q1

REPORT INFORMATION
  Report Type: 
  Country: None (occurrence: None)
  Receive Date: 20070223
  Receipt Date: 20070223
  Transmission Date: 20070707
  Serious: Yes (Hospitalization)
  Sender: FDA-Public Use
  Company Number: None

PATIENT
  Age: 63 Year
  Sex: Female
  Weight: 56.8 kg

DRUGS (2)
  1. ERBITUX [Suspect]
     Indication: BREAST CANCER STAGE IV
     Dosage: 250MG/M2  WEEKLY  IV
     Route: 042
     Dates: start: 20060705, end: 20061219
  2. CARBOPLATIN [Suspect]
     Indication: BREAST CANCER STAGE IV
     Dosage: AUC2  3/4 WEEKS  IV
     Route: 042
     Dates: start: 20061031, end: 20061212

REACTIONS (8)
  - CONVULSION [None]
  - DISEASE PROGRESSION [None]
  - HEMIPARESIS [None]
  - MEDIASTINAL MASS [None]
  - METASTASES TO CENTRAL NERVOUS SYSTEM [None]
  - NAUSEA [None]
  - PNEUMONIA [None]
  - VOMITING [None]
